FAERS Safety Report 17823845 (Version 1)
Quarter: 2020Q2

REPORT INFORMATION
  Report Type: Spontaneous
  Country: US (occurrence: US)
  Receive Date: 20200526
  Receipt Date: 20200526
  Transmission Date: 20200714
  Serious: No
  Sender: FDA-Public Use
  Company Number: US-MYLANLABS-2020M1046394

PATIENT
  Sex: Female
  Weight: 75 kg

DRUGS (1)
  1. GLATIRAMER [Suspect]
     Active Substance: GLATIRAMER
     Indication: MULTIPLE SCLEROSIS
     Dosage: DAILY
     Route: 058
     Dates: start: 201910

REACTIONS (2)
  - Injection site pain [Not Recovered/Not Resolved]
  - Product dose omission [Not Recovered/Not Resolved]
